FAERS Safety Report 17121946 (Version 1)
Quarter: 2019Q4

REPORT INFORMATION
  Report Type: Spontaneous
  Country: US (occurrence: US)
  Receive Date: 20191206
  Receipt Date: 20191206
  Transmission Date: 20200122
  Serious: No
  Sender: FDA-Public Use
  Company Number: US-ELI_LILLY_AND_COMPANY-US201911003707

PATIENT
  Sex: Female

DRUGS (1)
  1. EMGALITY [Suspect]
     Active Substance: GALCANEZUMAB-GNLM
     Indication: CLUSTER HEADACHE
     Dosage: 240 MG, SINGLE
     Route: 065
     Dates: start: 201906

REACTIONS (3)
  - Injection site reaction [Recovered/Resolved]
  - Rash erythematous [Recovered/Resolved]
  - Underdose [Unknown]
